FAERS Safety Report 23190297 (Version 2)
Quarter: 2023Q4

REPORT INFORMATION
  Report Type: Spontaneous
  Country: US (occurrence: US)
  Receive Date: 20231116
  Receipt Date: 20231201
  Transmission Date: 20240110
  Serious: No
  Sender: FDA-Public Use
  Company Number: US-LUPIN PHARMACEUTICALS INC.-2023-09991

PATIENT

DRUGS (2)
  1. ALBUTEROL SULFATE [Suspect]
     Active Substance: ALBUTEROL SULFATE
     Indication: Asthma
     Dosage: UNK, PRN, 2 PUFFS EVERY 4 HOURS
     Dates: start: 20231023
  2. MEDI [Concomitant]
     Indication: Product used for unknown indication
     Dosage: UNK
     Route: 065

REACTIONS (3)
  - Wheezing [Unknown]
  - Device delivery system issue [Unknown]
  - Drug dose omission by device [Unknown]
